FAERS Safety Report 8759614 (Version 6)
Quarter: 2013Q2

REPORT INFORMATION
  Report Type: Spontaneous
  Country: US (occurrence: US)
  Receive Date: 20120829
  Receipt Date: 20130603
  Transmission Date: 20140414
  Serious: Yes (Hospitalization)
  Sender: FDA-Public Use
  Company Number: US-B.I. PHARMACEUTICALS,INC./RIDGEFIELD-2012-BP-20472BP

PATIENT
  Age: 72 Year
  Sex: Male
  Weight: 58.06 kg

DRUGS (19)
  1. PRADAXA [Suspect]
     Indication: ATRIAL FIBRILLATION
     Dosage: 300 MG
     Route: 048
     Dates: start: 20110917, end: 20120514
  2. ATENOLOL [Concomitant]
     Dosage: 25 MG
  3. AMLODIPINE [Concomitant]
     Dosage: 5 MG
  4. CILOSTAZOL [Concomitant]
     Indication: PERIPHERAL ARTERIAL OCCLUSIVE DISEASE
     Dosage: 250 MG
  5. ATORVASTATIN [Concomitant]
     Dosage: 20 MG
  6. MAGNESIUM OXIDE [Concomitant]
     Dosage: 2250 MG
  7. OMEPRAZOLE [Concomitant]
  8. METHOCARBAMOL [Concomitant]
     Dosage: 800 MG
  9. AMIODARONE [Concomitant]
  10. AMITRIPTYLINE [Concomitant]
     Dosage: 10 MG
  11. ALENDRONATE [Concomitant]
  12. NTG [Concomitant]
     Dosage: 0.4 MG
  13. RYTHMOL [Concomitant]
     Dosage: 300 MG
  14. ASA [Concomitant]
     Dosage: 81 MG
  15. FOSAMAX [Concomitant]
  16. LIPITOR [Concomitant]
  17. NORVASC [Concomitant]
  18. ELAVIL [Concomitant]
  19. ROBAXIN [Concomitant]

REACTIONS (2)
  - Coagulopathy [Unknown]
  - Lower gastrointestinal haemorrhage [Recovered/Resolved]
